FAERS Safety Report 8026329-6 (Version None)
Quarter: 2012Q1

REPORT INFORMATION
  Report Type: 
  Country: None (occurrence: None)
  Receive Date: 20120105
  Receipt Date: 20111219
  Transmission Date: 20120608
  Serious: No
  Sender: FDA-Public Use
  Company Number: US-ABBOTT-11P-163-0886083-00

PATIENT
  Sex: Female

DRUGS (2)
  1. UNKNOWN NUTRITION SUPPLEMENTS [Concomitant]
     Indication: MEDICAL DIET
  2. SYNTHROID [Suspect]
     Indication: HYPOTHYROIDISM
     Route: 048

REACTIONS (4)
  - FATIGUE [None]
  - DRUG INEFFECTIVE [None]
  - FEELING ABNORMAL [None]
  - ARTHRALGIA [None]
